FAERS Safety Report 22310555 (Version 1)
Quarter: 2023Q2

REPORT INFORMATION
  Report Type: Spontaneous
  Country: US (occurrence: US)
  Receive Date: 20230511
  Receipt Date: 20230511
  Transmission Date: 20230721
  Serious: No
  Sender: FDA-Public Use
  Company Number: US-SA-SAC20230510001164

PATIENT
  Age: 81 Year
  Sex: Male
  Weight: 70.7 kg

DRUGS (7)
  1. DUPIXENT [Suspect]
     Active Substance: DUPILUMAB
     Indication: Dermatitis atopic
     Dosage: 300 MG, QOW
     Route: 058
     Dates: start: 202211
  2. VITAMIN D NOS [Concomitant]
     Active Substance: VITAMIN D NOS
  3. HYDROCHLOROTHIAZIDE [Concomitant]
     Active Substance: HYDROCHLOROTHIAZIDE
  4. OMEPRAZOLE [Concomitant]
     Active Substance: OMEPRAZOLE
  5. CARVEDILOL [Concomitant]
     Active Substance: CARVEDILOL
  6. AMLODIPINE BESYLATE [Concomitant]
     Active Substance: AMLODIPINE BESYLATE
  7. ENALAPRILAT [Concomitant]
     Active Substance: ENALAPRILAT

REACTIONS (1)
  - Pruritus [Not Recovered/Not Resolved]
